FAERS Safety Report 5109468-9 (Version None)
Quarter: 2006Q3

REPORT INFORMATION
  Report Type: 
  Country: None (occurrence: None)
  Receive Date: 20060918
  Receipt Date: 20060906
  Transmission Date: 20061208
  Serious: Yes (Hospitalization, Other)
  Sender: FDA-Public Use
  Company Number: 2006108962

PATIENT
  Age: 53 Year
  Sex: Female

DRUGS (2)
  1. NORVASC [Suspect]
     Indication: DRUG USE FOR UNKNOWN INDICATION
     Dosage: 5 MG (DAILY), ORAL
     Route: 048
     Dates: start: 20060718, end: 20060906
  2. LEFTOSE             (LYSOZYME) [Suspect]
     Indication: NASOPHARYNGITIS
     Dosage: ORAL
     Route: 048
     Dates: start: 20060301, end: 20060906

REACTIONS (2)
  - EOSINOPHIL COUNT INCREASED [None]
  - INTERSTITIAL LUNG DISEASE [None]
